FAERS Safety Report 10084146 (Version 1)
Quarter: 2014Q2

REPORT INFORMATION
  Report Type: Spontaneous
  Country: AU (occurrence: None)
  Receive Date: 20140415
  Receipt Date: 20140415
  Transmission Date: 20141212
  Serious: Yes (Death)
  Sender: FDA-Public Use
  Company Number: 2014P1002987

PATIENT
  Sex: 0

DRUGS (1)
  1. ALPRAZOLAM [Suspect]

REACTIONS (1)
  - Completed suicide [None]
